FAERS Safety Report 24606522 (Version 2)
Quarter: 2024Q4

REPORT INFORMATION
  Report Type: Spontaneous
  Country: FR (occurrence: FR)
  Receive Date: 20241112
  Receipt Date: 20241205
  Transmission Date: 20250115
  Serious: Yes (Life-Threatening, Other)
  Sender: JOHNSON AND JOHNSON
  Company Number: None

PATIENT
  Age: 62 Year
  Sex: Female

DRUGS (7)
  1. LOPERAMIDE HYDROCHLORIDE [Suspect]
     Active Substance: LOPERAMIDE HYDROCHLORIDE
     Indication: Poisoning deliberate
     Dosage: NOT SPECIFIED
     Route: 048
     Dates: start: 20240930, end: 20240930
  2. MIRTAZAPINE [Suspect]
     Active Substance: MIRTAZAPINE
     Indication: Poisoning deliberate
     Dosage: 2 PADS
     Route: 048
     Dates: start: 20240930, end: 20240930
  3. PROPRANOLOL [Suspect]
     Active Substance: PROPRANOLOL HYDROCHLORIDE
     Indication: Poisoning deliberate
     Dosage: NOT SPECIFIED
     Route: 048
     Dates: start: 20240930, end: 20240930
  4. PREGABALIN [Suspect]
     Active Substance: PREGABALIN
     Indication: Poisoning deliberate
     Dosage: NON PR?CIS?E
     Route: 048
     Dates: start: 20240930, end: 20240930
  5. PAROXETINE HYDROCHLORIDE [Suspect]
     Active Substance: PAROXETINE HYDROCHLORIDE
     Indication: Poisoning deliberate
     Dosage: NOT SPECIFIED
     Route: 048
     Dates: start: 20240930, end: 20240930
  6. OXAZEPAM [Suspect]
     Active Substance: OXAZEPAM
     Indication: Poisoning deliberate
     Dosage: NOT SPECIFIED
     Route: 048
     Dates: start: 20240930, end: 20240930
  7. MIDAZOLAM [Suspect]
     Active Substance: MIDAZOLAM
     Indication: Poisoning deliberate
     Dosage: NOT SPECIFIED
     Route: 048
     Dates: start: 20240930, end: 20240930

REACTIONS (5)
  - Cardio-respiratory arrest [Recovered/Resolved]
  - Coma [Recovered/Resolved]
  - Bradycardia [Recovered/Resolved]
  - Mydriasis [Recovered/Resolved]
  - Intentional product misuse [Recovered/Resolved]

NARRATIVE: CASE EVENT DATE: 20240930
